FAERS Safety Report 8229844-5 (Version None)
Quarter: 2012Q1

REPORT INFORMATION
  Report Type: 
  Country: None (occurrence: None)
  Receive Date: 20120323
  Receipt Date: 20111027
  Transmission Date: 20120608
  Serious: Yes (Other)
  Sender: FDA-Public Use
  Company Number: HR-AMGEN-HRVSP2011070064

PATIENT
  Age: 13 Year
  Sex: Female
  Weight: 51 kg

DRUGS (3)
  1. NEUPOGEN [Suspect]
     Dosage: 600 MG, UNK
     Route: 058
     Dates: start: 20060501, end: 20060525
  2. NEUPOGEN [Suspect]
     Dosage: 600 MG, UNK
     Route: 058
     Dates: start: 20060201
  3. NEUPOGEN [Suspect]
     Indication: LEUKAPHERESIS
     Dosage: 600 MG, UNK
     Route: 058
     Dates: start: 20051101

REACTIONS (2)
  - HYPOGLYCAEMIA [None]
  - SYNCOPE [None]
